FAERS Safety Report 12491904 (Version 2)
Quarter: 2016Q2

REPORT INFORMATION
  Report Type: Spontaneous
  Country: IL (occurrence: IL)
  Receive Date: 20160623
  Receipt Date: 20160627
  Transmission Date: 20160815
  Serious: Yes (Other)
  Sender: FDA-Public Use
  Company Number: IL-BIOVITRUM-2016IL0441

PATIENT
  Sex: Female

DRUGS (2)
  1. ORFADIN [Suspect]
     Active Substance: NITISINONE
     Dates: start: 201511
  2. ORFADIN [Suspect]
     Active Substance: NITISINONE
     Dates: start: 200702, end: 201511

REACTIONS (1)
  - Condition aggravated [Not Recovered/Not Resolved]
